FAERS Safety Report 12753538 (Version 2)
Quarter: 2017Q2

REPORT INFORMATION
  Report Type: Spontaneous
  Country: US (occurrence: US)
  Receive Date: 20160916
  Receipt Date: 20170406
  Transmission Date: 20170830
  Serious: No
  Sender: FDA-Public Use
  Company Number: US-PFIZER INC-2016429851

PATIENT
  Age: 68 Year
  Sex: Female

DRUGS (16)
  1. PROPRANOLOL [Concomitant]
     Active Substance: PROPRANOLOL HYDROCHLORIDE
     Indication: TREMOR
     Dosage: 10 MG, (1 EVERY 6 HOURS)
     Dates: start: 20160728
  2. TRAZODONE [Concomitant]
     Active Substance: TRAZODONE HYDROCHLORIDE
     Indication: SLEEP DISORDER
     Dosage: 100 MG, (TAKES 2 TO 2 AND A HALF TABLETS AT BEDTIME DAILY)
  3. LYRICA [Suspect]
     Active Substance: PREGABALIN
     Indication: BURNING SENSATION
     Dosage: 100 MG, THREE TIMES A DAY
     Route: 048
     Dates: start: 200602
  4. OMEPRAZOLE. [Concomitant]
     Active Substance: OMEPRAZOLE
     Indication: GASTRIC DISORDER
     Dosage: 40 MG, 1X/DAY (AT NIGHT)
     Dates: start: 2009
  5. LEVOCETIRIZINE [Concomitant]
     Active Substance: LEVOCETIRIZINE
     Indication: RHINORRHOEA
     Dosage: 5 MG, (ONE TIME A DAY OR AS NEEDED)
     Dates: start: 2016
  6. PROTONIX [Concomitant]
     Active Substance: PANTOPRAZOLE SODIUM
     Dosage: 20 MG, 2X/DAY
  7. POTASSIUM [Concomitant]
     Active Substance: POTASSIUM
     Indication: BLOOD POTASSIUM DECREASED
     Dosage: 1 DF, UNK
  8. BUSPIRONE [Concomitant]
     Active Substance: BUSPIRONE HYDROCHLORIDE
     Indication: NEUROPATHY PERIPHERAL
     Dosage: 30 MG, 2X/DAY (15 MG, 2 TABLETS TWICE A DAY AS NEEDED)
  9. KEFLEX [Concomitant]
     Active Substance: CEPHALEXIN
     Indication: INFECTION
     Dosage: 500 MG, 1 PILL EVERY 6 HOURS
     Dates: start: 201605
  10. POTASSIUM [Concomitant]
     Active Substance: POTASSIUM
     Dosage: 1/2 TABLET OF 20 MEQ TABLET ONE TIME A DAY
  11. VENLAFAXINE XR [Concomitant]
     Active Substance: VENLAFAXINE HYDROCHLORIDE
     Indication: DEPRESSION
     Dosage: 75 MG, (2 AT NIGHT)
  12. OXYBUTIN [Concomitant]
     Active Substance: OXYBUTYNIN
     Indication: BLADDER DISORDER
     Dosage: 5 MG, 2X/DAY
     Dates: start: 2009
  13. SKELAXIN [Concomitant]
     Active Substance: METAXALONE
     Dosage: 800 MG, BID OR TID AS DIRECTED
     Route: 048
  14. TIZANIDINE. [Concomitant]
     Active Substance: TIZANIDINE
     Indication: MUSCLE RELAXANT THERAPY
     Dosage: 4 MG, (1 TABLET EVERY 8 TO 12 HOURS AS NEEDED)
     Dates: start: 20160728
  15. LASIX [Concomitant]
     Active Substance: FUROSEMIDE
     Indication: BLADDER DISORDER
     Dosage: 20 MG, (ONCE A WEEK AS NEEDED)
     Dates: start: 201501
  16. NORCO [Concomitant]
     Active Substance: ACETAMINOPHEN\HYDROCODONE BITARTRATE
     Indication: PAIN
     Dosage: 1 DF (PILL), 4X/DAY [HYDROCODONE BITARTRATE 7.5MG/PARACETAMOL 325MG]

REACTIONS (3)
  - Musculoskeletal stiffness [Unknown]
  - Feeling abnormal [Unknown]
  - Drug ineffective for unapproved indication [Unknown]

NARRATIVE: CASE EVENT DATE: 2015
